FAERS Safety Report 10692332 (Version 1)
Quarter: 2015Q1

REPORT INFORMATION
  Report Type: Spontaneous
  Country: US (occurrence: US)
  Receive Date: 20150106
  Receipt Date: 20150106
  Transmission Date: 20150720
  Serious: No
  Sender: FDA-Public Use
  Company Number: US-BIOGENIDEC-2015BI000581

PATIENT
  Age: 49 Year
  Sex: Female

DRUGS (1)
  1. TECFIDERA [Suspect]
     Active Substance: DIMETHYL FUMARATE
     Indication: RELAPSING-REMITTING MULTIPLE SCLEROSIS
     Route: 048
     Dates: start: 201410

REACTIONS (5)
  - Hearing impaired [Not Recovered/Not Resolved]
  - Cognitive disorder [Recovered/Resolved]
  - Heart rate increased [Not Recovered/Not Resolved]
  - Underdose [Recovered/Resolved]
  - Blood pressure [Not Recovered/Not Resolved]

NARRATIVE: CASE EVENT DATE: 2014
